FAERS Safety Report 13795647 (Version 2)
Quarter: 2017Q4

REPORT INFORMATION
  Report Type: Not Available
  Country: US (occurrence: US)
  Receive Date: 20170726
  Receipt Date: 20171019
  Transmission Date: 20180320
  Serious: No
  Sender: FDA-Public Use
  Company Number: US-NEUROCRINE BIOSCIENCES INC.-2017NBI00281

PATIENT
  Age: 72 Year
  Sex: Female
  Weight: 81.72 kg

DRUGS (15)
  1. TRAMADOL. [Concomitant]
     Active Substance: TRAMADOL
  2. ASPIRIN. [Concomitant]
     Active Substance: ASPIRIN
  3. VITAMIN D [Concomitant]
     Active Substance: CHOLECALCIFEROL
  4. ZALEPLON. [Concomitant]
     Active Substance: ZALEPLON
  5. INGREZZA [Suspect]
     Active Substance: VALBENAZINE
     Dosage: AT NIGHT
     Route: 048
     Dates: start: 20170601, end: 201706
  6. INGREZZA [Suspect]
     Active Substance: VALBENAZINE
     Route: 048
     Dates: start: 201706
  7. CALCIUM [Concomitant]
     Active Substance: CALCIUM
  8. LISINOPRIL. [Concomitant]
     Active Substance: LISINOPRIL
  9. SIMVASTATIN. [Concomitant]
     Active Substance: SIMVASTATIN
  10. INGREZZA [Suspect]
     Active Substance: VALBENAZINE
     Indication: DYSKINESIA
     Route: 048
     Dates: start: 20170525, end: 20170531
  11. BYSTOLIC [Concomitant]
     Active Substance: NEBIVOLOL HYDROCHLORIDE
  12. MISOPROSTOL. [Concomitant]
     Active Substance: MISOPROSTOL
  13. ESOMEPRAZOLE MAG DR [Concomitant]
  14. SYNTHROID [Concomitant]
     Active Substance: LEVOTHYROXINE SODIUM
  15. MULTIVITAMIN [Concomitant]
     Active Substance: VITAMINS

REACTIONS (4)
  - Restlessness [Recovering/Resolving]
  - Asthenia [Not Recovered/Not Resolved]
  - Agitation [Recovered/Resolved]
  - Dyskinesia [Recovering/Resolving]

NARRATIVE: CASE EVENT DATE: 201705
